FAERS Safety Report 25407692 (Version 2)
Quarter: 2025Q3

REPORT INFORMATION
  Report Type: Spontaneous
  Country: JP (occurrence: JP)
  Receive Date: 20250606
  Receipt Date: 20250709
  Transmission Date: 20251020
  Serious: Yes (Other)
  Sender: PFIZER
  Company Number: JP-PFIZER INC-202500116087

PATIENT
  Age: 54 Year
  Sex: Female

DRUGS (3)
  1. IBRANCE [Suspect]
     Active Substance: PALBOCICLIB
     Dates: start: 202208, end: 20221214
  2. LETROZOLE [Concomitant]
     Active Substance: LETROZOLE
     Dates: start: 202001, end: 202211
  3. FASLODEX [Concomitant]
     Active Substance: FULVESTRANT
     Dates: start: 202211, end: 202401

REACTIONS (1)
  - Myelosuppression [Unknown]

NARRATIVE: CASE EVENT DATE: 20221201
